FAERS Safety Report 5574949-0 (Version None)
Quarter: 2007Q4

REPORT INFORMATION
  Report Type: 
  Country: None (occurrence: None)
  Receive Date: 20071227
  Receipt Date: 20071219
  Transmission Date: 20080405
  Serious: Yes (Other)
  Sender: FDA-Public Use
  Company Number: B0479109A

PATIENT
  Age: 35 Year
  Sex: Male
  Weight: 58 kg

DRUGS (3)
  1. LAMICTAL [Suspect]
     Indication: EPILEPSY
     Dosage: 250MG TWICE PER DAY
     Route: 048
     Dates: start: 20000801
  2. ALEPSAL [Suspect]
     Dosage: 115MG PER DAY
     Route: 065
     Dates: start: 19980501
  3. KEPPRA [Suspect]
     Dosage: 1000MG THREE TIMES PER DAY
     Route: 065
     Dates: start: 20060701

REACTIONS (2)
  - INFERTILITY [None]
  - TERATOSPERMIA [None]
